FAERS Safety Report 18546066 (Version 1)
Quarter: 2020Q4

REPORT INFORMATION
  Report Type: Report from Study
  Country: BE (occurrence: BE)
  Receive Date: 20201125
  Receipt Date: 20201125
  Transmission Date: 20210114
  Serious: Yes (Hospitalization)
  Sender: FDA-Public Use
  Company Number: BE-JNJFOC-20201044918

PATIENT
  Age: 52 Year
  Sex: Female
  Weight: 55 kg

DRUGS (10)
  1. DEANXIT [Concomitant]
     Active Substance: FLUPENTIXOL DIHYDROCHLORIDE\MELITRACEN HYDROCHLORIDE
     Indication: INSOMNIA
     Route: 065
     Dates: start: 2018
  2. BICARBONATE [Concomitant]
     Active Substance: SODIUM BICARBONATE
     Indication: STOMATITIS
     Route: 048
     Dates: start: 20201015
  3. ERDAFITINIB. [Suspect]
     Active Substance: ERDAFITINIB
     Indication: CHOLANGIOCARCINOMA
     Route: 048
     Dates: start: 20201015, end: 20201026
  4. SOTALEX [Concomitant]
     Active Substance: SOTALOL
     Indication: ATRIAL FIBRILLATION
     Route: 065
     Dates: start: 2019
  5. SPIRIVA [Concomitant]
     Active Substance: TIOTROPIUM BROMIDE MONOHYDRATE
     Indication: OBSTRUCTIVE AIRWAYS DISORDER
     Route: 065
     Dates: start: 2015
  6. OXYNORM [Concomitant]
     Active Substance: OXYCODONE HYDROCHLORIDE
     Indication: CANCER PAIN
     Route: 065
     Dates: start: 202009
  7. COVERAM [Concomitant]
     Active Substance: AMLODIPINE\PERINDOPRIL
     Indication: HYPERTENSION
     Route: 065
     Dates: start: 201812, end: 20201026
  8. STILAZE [Concomitant]
     Indication: INSOMNIA
     Route: 065
  9. LITICAN [ALIZAPRIDE] [Concomitant]
     Indication: NAUSEA
     Route: 065
     Dates: start: 20201015
  10. ELIQUIS [Concomitant]
     Active Substance: APIXABAN
     Indication: ATRIAL FIBRILLATION
     Route: 065
     Dates: start: 2019, end: 20201024

REACTIONS (2)
  - Colitis ischaemic [Recovered/Resolved]
  - Acute kidney injury [Recovered/Resolved]

NARRATIVE: CASE EVENT DATE: 20201023
